FAERS Safety Report 5558320-3 (Version None)
Quarter: 2007Q4

REPORT INFORMATION
  Report Type: 
  Country: None (occurrence: None)
  Receive Date: 20071214
  Receipt Date: 20071206
  Transmission Date: 20080405
  Serious: Yes (Congenital Anomaly, Other)
  Sender: FDA-Public Use
  Company Number: US-ABBOTT-07P-163-0427632-00

PATIENT
  Weight: 1.544 kg

DRUGS (1)
  1. HUMIRA [Suspect]
     Indication: DRUG EXPOSURE DURING PREGNANCY
     Route: 064

REACTIONS (3)
  - PREMATURE BABY [None]
  - SMALL FOR DATES BABY [None]
  - TRISOMY 21 [None]
